FAERS Safety Report 10172624 (Version 1)
Quarter: 2014Q2

REPORT INFORMATION
  Report Type: Spontaneous
  Country: US (occurrence: US)
  Receive Date: 20140515
  Receipt Date: 20140515
  Transmission Date: 20141212
  Serious: No
  Sender: FDA-Public Use
  Company Number: US-ABBVIE-13P-163-1101736-00

PATIENT
  Sex: Male

DRUGS (3)
  1. GENGRAF [Suspect]
     Indication: LIVER TRANSPLANT
  2. INSULIN [Concomitant]
     Indication: PRODUCT USED FOR UNKNOWN INDICATION
  3. INSULIN [Concomitant]
     Indication: PRODUCT USED FOR UNKNOWN INDICATION

REACTIONS (5)
  - Irritability [Unknown]
  - Hair growth abnormal [Unknown]
  - Renal impairment [Unknown]
  - Hypertension [Unknown]
  - Anaemia [Unknown]
